FAERS Safety Report 6678323-5 (Version None)
Quarter: 2010Q2

REPORT INFORMATION
  Report Type: 
  Country: None (occurrence: None)
  Receive Date: 20100413
  Receipt Date: 20100402
  Transmission Date: 20101027
  Serious: Yes (Death, Hospitalization)
  Sender: FDA-Public Use
  Company Number: US-BIOGENIDEC-2010BI010451

PATIENT
  Age: 75 Year
  Sex: Female

DRUGS (4)
  1. TYSABRI [Suspect]
     Indication: MULTIPLE SCLEROSIS
     Route: 042
     Dates: start: 20070103, end: 20100113
  2. ASPIRIN [Concomitant]
  3. BONIVA [Concomitant]
  4. ZOCOR [Concomitant]

REACTIONS (2)
  - DEATH [None]
  - INTESTINAL PROLAPSE [None]
